FAERS Safety Report 5398989-X (Version None)
Quarter: 2007Q3

REPORT INFORMATION
  Report Type: 
  Country: None (occurrence: None)
  Receive Date: 20070727
  Receipt Date: 20070713
  Transmission Date: 20080115
  Serious: Yes (Hospitalization)
  Sender: FDA-Public Use
  Company Number: GB-PFIZER INC-2007055162

PATIENT
  Age: 55 Year
  Sex: Female
  Weight: 60 kg

DRUGS (10)
  1. GABAPENTIN [Suspect]
     Indication: NEURALGIA
     Route: 048
  2. ALFENTANIL [Interacting]
     Indication: GENERAL ANAESTHESIA
     Route: 042
  3. FENTANYL TRANSDERMAL SYSTEM [Interacting]
     Indication: GENERAL ANAESTHESIA
     Route: 042
  4. ISOFLURANE [Interacting]
     Indication: GENERAL ANAESTHESIA
     Route: 055
  5. PROPOFOL [Interacting]
     Indication: GENERAL ANAESTHESIA
     Route: 042
  6. SEVOFLURANE [Interacting]
     Indication: GENERAL ANAESTHESIA
     Route: 055
  7. DEXAMETHASONE 0.5MG TAB [Concomitant]
  8. ACETAMINOPHEN [Concomitant]
  9. CODEINE SUL TAB [Concomitant]
  10. OXYGEN [Concomitant]
     Route: 055

REACTIONS (4)
  - DRUG INTERACTION [None]
  - DYSTONIA [None]
  - MYOTONIA [None]
  - SINUS TACHYCARDIA [None]
